FAERS Safety Report 12157745 (Version 1)
Quarter: 2016Q1

REPORT INFORMATION
  Report Type: Spontaneous
  Country: US (occurrence: US)
  Receive Date: 20160308
  Receipt Date: 20160308
  Transmission Date: 20160526
  Serious: No
  Sender: FDA-Public Use
  Company Number: US-JNJFOC-20141104373

PATIENT
  Age: 63 Year
  Sex: Female

DRUGS (12)
  1. ACYCLOVIR. [Concomitant]
     Active Substance: ACYCLOVIR
  2. LIPITOR [Concomitant]
     Active Substance: ATORVASTATIN CALCIUM
  3. METOPROLOL TARTRATE. [Concomitant]
     Active Substance: METOPROLOL TARTRATE
  4. AMBIEN [Concomitant]
     Active Substance: ZOLPIDEM TARTRATE
  5. CRANBERRY PILL [Concomitant]
  6. METAMUCIL [Concomitant]
     Active Substance: PLANTAGO SEED
  7. ESTRACE [Concomitant]
     Active Substance: ESTRADIOL
  8. MACRODANTIN [Concomitant]
     Active Substance: NITROFURANTOIN
  9. IMBRUVICA [Suspect]
     Active Substance: IBRUTINIB
     Indication: CHRONIC LYMPHOCYTIC LEUKAEMIA
     Route: 065
     Dates: start: 20141017
  10. FISH OIL [Concomitant]
     Active Substance: FISH OIL
  11. FLAXSEED [Concomitant]
     Active Substance: FLAX SEED
  12. VITAMIN D [Concomitant]
     Active Substance: CHOLECALCIFEROL

REACTIONS (4)
  - Prescribed underdose [Not Recovered/Not Resolved]
  - Petechiae [Not Recovered/Not Resolved]
  - Platelet count decreased [Not Recovered/Not Resolved]
  - White blood cell count increased [Not Recovered/Not Resolved]

NARRATIVE: CASE EVENT DATE: 201410
